FAERS Safety Report 5020544-1 (Version None)
Quarter: 2006Q2

REPORT INFORMATION
  Report Type: 
  Country: None (occurrence: None)
  Receive Date: 20060607
  Receipt Date: 20060607
  Transmission Date: 20061013
  Serious: Yes (Other)
  Sender: FDA-Public Use
  Company Number: None

PATIENT
  Age: 45 Year
  Sex: Female
  Weight: 63.5036 kg

DRUGS (1)
  1. CYMBALTA [Suspect]
     Indication: ANXIETY
     Dosage: 60 MG EVERY EVENING PO
     Route: 048
     Dates: start: 20050301, end: 20060313

REACTIONS (11)
  - AMNESIA [None]
  - APNOEA [None]
  - BRAIN DAMAGE [None]
  - COGNITIVE DISORDER [None]
  - DRUG WITHDRAWAL SYNDROME [None]
  - DYSPNOEA [None]
  - FATIGUE [None]
  - IMPAIRED WORK ABILITY [None]
  - MIDDLE INSOMNIA [None]
  - NERVOUS SYSTEM DISORDER [None]
  - RESTLESS LEGS SYNDROME [None]
